FAERS Safety Report 17971012 (Version 1)
Quarter: 2020Q3

REPORT INFORMATION
  Report Type: Spontaneous
  Country: US (occurrence: US)
  Receive Date: 20200701
  Receipt Date: 20200701
  Transmission Date: 20201103
  Serious: Yes (Other)
  Sender: FDA-Public Use
  Company Number: NVSC2020US176504

PATIENT
  Sex: Female

DRUGS (2)
  1. CARBOPLATIN. [Suspect]
     Active Substance: CARBOPLATIN
     Indication: GLIOMA
     Dosage: UNK
     Route: 065
     Dates: start: 201605, end: 201708
  2. VINCRISTINE [Suspect]
     Active Substance: VINCRISTINE
     Indication: GLIOMA
     Dosage: UNK
     Route: 065
     Dates: start: 201605, end: 201708

REACTIONS (4)
  - Malignant neoplasm progression [Unknown]
  - Dysphagia [Unknown]
  - Product use in unapproved indication [Unknown]
  - Glioma [Unknown]

NARRATIVE: CASE EVENT DATE: 202006
